FAERS Safety Report 13702687 (Version 1)
Quarter: 2017Q2

REPORT INFORMATION
  Report Type: Spontaneous
  Country: US (occurrence: US)
  Receive Date: 20170629
  Receipt Date: 20170629
  Transmission Date: 20170830
  Serious: Yes (Hospitalization, Other)
  Sender: FDA-Public Use
  Company Number: US-JNJFOC-20170621961

PATIENT
  Age: 60 Year
  Sex: Male
  Weight: 99.79 kg

DRUGS (2)
  1. SIMPONI [Suspect]
     Active Substance: GOLIMUMAB
     Indication: PSORIATIC ARTHROPATHY
     Route: 058
     Dates: start: 2009, end: 201702
  2. HYDROCODONE [Concomitant]
     Active Substance: HYDROCODONE
     Indication: PAIN
     Dosage: 10/325 MG/ TWICE A DAY AS NEEDED
     Route: 065

REACTIONS (5)
  - Fall [Recovered/Resolved]
  - Drug effect decreased [Not Recovered/Not Resolved]
  - Tendon rupture [Recovering/Resolving]
  - Sinusitis [Recovered/Resolved]
  - Inflammation [Not Recovered/Not Resolved]

NARRATIVE: CASE EVENT DATE: 201305
